FAERS Safety Report 22700551 (Version 3)
Quarter: 2025Q2

REPORT INFORMATION
  Report Type: Spontaneous
  Country: US (occurrence: US)
  Receive Date: 20230713
  Receipt Date: 20250417
  Transmission Date: 20250716
  Serious: Yes (Life-Threatening, Hospitalization, Other)
  Sender: PFIZER
  Company Number: US-MLMSERVICE-20230707-4388429-1

PATIENT
  Age: 47 Year
  Sex: Female

DRUGS (4)
  1. METHYLPREDNISOLONE ACETATE [Suspect]
     Active Substance: METHYLPREDNISOLONE ACETATE
     Indication: Immunosuppressant drug therapy
  2. AZATHIOPRINE [Suspect]
     Active Substance: AZATHIOPRINE
     Indication: Immunosuppressant drug therapy
  3. COLCHICINE [Suspect]
     Active Substance: COLCHICINE
  4. HYDROXYCHLOROQUINE [Suspect]
     Active Substance: HYDROXYCHLOROQUINE

REACTIONS (9)
  - Pancytopenia [Unknown]
  - Myopathy [Recovered/Resolved]
  - Respiratory acidosis [Recovering/Resolving]
  - Acute kidney injury [Unknown]
  - Bacteraemia [Unknown]
  - Proteus infection [Unknown]
  - Respiratory failure [Recovering/Resolving]
  - Hypotension [Unknown]
  - Enterococcal bacteraemia [Unknown]
